FAERS Safety Report 12185820 (Version 1)
Quarter: 2016Q1

REPORT INFORMATION
  Report Type: Spontaneous
  Country: US (occurrence: US)
  Receive Date: 20160317
  Receipt Date: 20160317
  Transmission Date: 20160526
  Serious: Yes (Hospitalization)
  Sender: FDA-Public Use
  Company Number: US-HOSPIRA-3207221

PATIENT
  Age: 77 Year
  Sex: Male
  Weight: 84.8 kg

DRUGS (23)
  1. ALLOPURINOL. [Concomitant]
     Active Substance: ALLOPURINOL
     Indication: PROPHYLAXIS
     Route: 048
     Dates: start: 20151105, end: 20151125
  2. VENETOCLAX [Suspect]
     Active Substance: VENETOCLAX
     Indication: ACUTE MYELOID LEUKAEMIA
     Route: 048
     Dates: start: 20151110, end: 20151110
  3. DEXTROSE WATER [Concomitant]
     Indication: PROPHYLAXIS
     Dates: start: 20151203, end: 20151204
  4. NORMAL SALINE [Concomitant]
     Active Substance: SODIUM CHLORIDE
     Indication: FLUID REPLACEMENT
     Dates: start: 20151105, end: 20151108
  5. CYTARABINE. [Suspect]
     Active Substance: CYTARABINE
     Indication: ACUTE MYELOID LEUKAEMIA
     Dosage: DAYS 1-10 OF ALL CYCLES, CYCLE 28 DAYS
     Route: 058
     Dates: start: 20151106, end: 20151111
  6. GLIMEPIRIDE. [Concomitant]
     Active Substance: GLIMEPIRIDE
     Indication: HYPERGLYCAEMIA
     Dosage: 4 MG
     Route: 048
  7. VENETOCLAX [Suspect]
     Active Substance: VENETOCLAX
     Indication: ACUTE MYELOID LEUKAEMIA
     Route: 048
     Dates: start: 20151120, end: 20151201
  8. LISINOPRIL. [Concomitant]
     Active Substance: LISINOPRIL
     Indication: HYPERTENSION
     Route: 048
  9. LISINOPRIL. [Concomitant]
     Active Substance: LISINOPRIL
     Indication: PROPHYLAXIS
     Route: 048
  10. LEVOFLOXACIN. [Concomitant]
     Active Substance: LEVOFLOXACIN
     Indication: INFECTION PROPHYLAXIS
     Route: 048
  11. DEXTROSE WATER [Concomitant]
     Indication: TUMOUR LYSIS SYNDROME
     Dates: start: 20151203, end: 20151204
  12. DEXTROSE WATER [Concomitant]
     Indication: FLUID REPLACEMENT
     Dates: start: 20151203, end: 20151204
  13. GLIMEPIRIDE. [Concomitant]
     Active Substance: GLIMEPIRIDE
     Indication: DIABETES MELLITUS
     Dosage: 4 MG
     Route: 048
  14. VENETOCLAX [Suspect]
     Active Substance: VENETOCLAX
     Indication: ACUTE MYELOID LEUKAEMIA
     Route: 048
     Dates: start: 20151109, end: 20151109
  15. VENETOCLAX [Suspect]
     Active Substance: VENETOCLAX
     Indication: ACUTE MYELOID LEUKAEMIA
     Route: 048
     Dates: start: 20151107, end: 20151107
  16. VENETOCLAX [Suspect]
     Active Substance: VENETOCLAX
     Indication: ACUTE MYELOID LEUKAEMIA
     Route: 048
     Dates: start: 20151111, end: 20151111
  17. NORMAL SALINE [Concomitant]
     Active Substance: SODIUM CHLORIDE
     Indication: PROPHYLAXIS
     Dates: start: 20151105, end: 20151108
  18. ALLOPURINOL. [Concomitant]
     Active Substance: ALLOPURINOL
     Indication: TUMOUR LYSIS SYNDROME
     Route: 048
     Dates: start: 20151105, end: 20151125
  19. VENETOCLAX [Suspect]
     Active Substance: VENETOCLAX
     Indication: ACUTE MYELOID LEUKAEMIA
     Route: 048
     Dates: start: 20151108, end: 20151108
  20. VENETOCLAX [Suspect]
     Active Substance: VENETOCLAX
     Indication: ACUTE MYELOID LEUKAEMIA
     Route: 048
     Dates: start: 20151211, end: 20160110
  21. VENETOCLAX [Suspect]
     Active Substance: VENETOCLAX
     Indication: ACUTE MYELOID LEUKAEMIA
     Route: 048
     Dates: start: 20160111
  22. DILTIAZEM HYDROCHLORIDE. [Concomitant]
     Active Substance: DILTIAZEM HYDROCHLORIDE
     Indication: HYPERTENSION
     Route: 048
  23. NORMAL SALINE [Concomitant]
     Active Substance: SODIUM CHLORIDE
     Indication: TUMOUR LYSIS SYNDROME
     Dates: start: 20151105, end: 20151108

REACTIONS (1)
  - Large intestine perforation [Recovered/Resolved]

NARRATIVE: CASE EVENT DATE: 20151112
